FAERS Safety Report 8821759 (Version 1)
Quarter: 2012Q4

REPORT INFORMATION
  Report Type: 
  Country: US (occurrence: US)
  Receive Date: 20121002
  Receipt Date: 20121002
  Transmission Date: 20130627
  Serious: Yes (Other)
  Sender: FDA-Public Use
  Company Number: US-MERCK-1210USA000685

PATIENT
  Age: 54 Year
  Sex: Female

DRUGS (4)
  1. JANUVIA [Suspect]
     Route: 048
  2. METFORMIN HYDROCHLORIDE [Suspect]
  3. INSULIN [Suspect]
  4. ACTOS [Suspect]

REACTIONS (4)
  - Weight increased [Unknown]
  - Drug ineffective [Unknown]
  - Liver disorder [Unknown]
  - Renal disorder [Unknown]
